FAERS Safety Report 11558629 (Version 1)
Quarter: 2015Q3

REPORT INFORMATION
  Report Type: Other
  Country: DE (occurrence: DE)
  Receive Date: 20150928
  Receipt Date: 20150928
  Transmission Date: 20151125
  Serious: Yes (Hospitalization)
  Sender: FDA-Public Use
  Company Number: DE-SUN PHARMACEUTICAL INDUSTRIES LTD-2013SUN00485

PATIENT

DRUGS (2)
  1. CARBO-CELL [Suspect]
     Active Substance: CARBOPLATIN
     Indication: OVARIAN CANCER
     Dosage: 530 FOR 30 MINUTES
     Route: 042
  2. GEMCITABINE [Suspect]
     Active Substance: GEMCITABINE\GEMCITABINE HYDROCHLORIDE
     Indication: OVARIAN CANCER
     Dosage: 1750 FOR 30 MINUTES
     Route: 042

REACTIONS (9)
  - Blood pressure increased [Recovering/Resolving]
  - Body temperature increased [None]
  - Tachycardia [Recovering/Resolving]
  - Peripheral swelling [Recovering/Resolving]
  - Rash [Recovering/Resolving]
  - Blood pressure increased [None]
  - Dyspnoea [None]
  - Oedema peripheral [None]
  - Rash [None]

NARRATIVE: CASE EVENT DATE: 20121019
